FAERS Safety Report 16724997 (Version 1)
Quarter: 2019Q3

REPORT INFORMATION
  Report Type: Spontaneous
  Country: US (occurrence: US)
  Receive Date: 20190821
  Receipt Date: 20190821
  Transmission Date: 20191005
  Serious: No
  Sender: FDA-Public Use
  Company Number: US-ALEXION PHARMACEUTICALS INC.-A201912224

PATIENT
  Age: 51 Year
  Sex: Female

DRUGS (2)
  1. REMICADE [Concomitant]
     Active Substance: INFLIXIMAB
     Indication: ANKYLOSING SPONDYLITIS
     Dosage: UNK
     Route: 065
  2. STRENSIQ [Suspect]
     Active Substance: ASFOTASE ALFA
     Indication: HYPOPHOSPHATASIA
     Dosage: UNK
     Route: 065
     Dates: start: 201901

REACTIONS (3)
  - Spinal pain [Recovered/Resolved]
  - Drug interaction [Recovered/Resolved]
  - Arthralgia [Recovered/Resolved]
